FAERS Safety Report 6549290-X (Version None)
Quarter: 2010Q1

REPORT INFORMATION
  Report Type: 
  Country: None (occurrence: None)
  Receive Date: 20100119
  Receipt Date: 20091229
  Transmission Date: 20100710
  Serious: Yes (Hospitalization)
  Sender: FDA-Public Use
  Company Number: 002299

PATIENT
  Sex: Female

DRUGS (20)
  1. ROTIGOTINE (ROTIGOTINE) [Suspect]
     Indication: PARKINSON'S DISEASE
     Dosage: SEE IMAGE
     Route: 062
     Dates: start: 20091130, end: 20091208
  2. ROTIGOTINE (ROTIGOTINE) [Suspect]
     Indication: PARKINSON'S DISEASE
     Dosage: SEE IMAGE
     Route: 062
     Dates: start: 20091208, end: 20091214
  3. ROTIGOTINE (ROTIGOTINE) [Suspect]
     Indication: PARKINSON'S DISEASE
     Dosage: SEE IMAGE
     Route: 062
     Dates: start: 20091214, end: 20091221
  4. ROTIGOTINE (ROTIGOTINE) [Suspect]
     Indication: PARKINSON'S DISEASE
     Dosage: SEE IMAGE
     Route: 062
     Dates: start: 20091221, end: 20091228
  5. ROTIGOTINE (ROTIGOTINE) [Suspect]
     Indication: PARKINSON'S DISEASE
     Dosage: SEE IMAGE
     Route: 062
     Dates: start: 20091228
  6. MAGNESIUM OXIDE [Concomitant]
  7. SENNA ALEXANDRINA EXTRACT [Concomitant]
  8. OLMESARTAN MEDOXOMIL [Concomitant]
  9. SOLIFENACIN SUCCINATE [Concomitant]
  10. NIFEDIPINE [Concomitant]
  11. LEVODOPA [Concomitant]
  12. SELEGILINE HYDROCHLORIDE [Concomitant]
  13. PRAMIPEXOLE DIHYDROCHLORIDE [Concomitant]
  14. GALENIC /HYALURONATE SODIUM/ACETYLCHOLIN [Concomitant]
  15. LIDOCAINE [Concomitant]
  16. LIDOCAINE HYDROCHLORIDE [Concomitant]
  17. LANSOPRAZOLE [Concomitant]
  18. IRSOGLADINE MALEATE [Concomitant]
  19. MOSAPRIDE CITRATE [Concomitant]
  20. DOMPERIDONE [Concomitant]

REACTIONS (6)
  - COMPRESSION FRACTURE [None]
  - FALL [None]
  - JOINT INJURY [None]
  - MOVEMENT DISORDER [None]
  - PAIN [None]
  - REFLUX OESOPHAGITIS [None]
